FAERS Safety Report 7764787-2 (Version None)
Quarter: 2011Q3

REPORT INFORMATION
  Report Type: 
  Country: None (occurrence: None)
  Receive Date: 20110921
  Receipt Date: 20110921
  Transmission Date: 20111222
  Serious: Yes (Hospitalization, Other)
  Sender: FDA-Public Use
  Company Number: None

PATIENT
  Age: 76 Year
  Sex: Female
  Weight: 96.161 kg

DRUGS (2)
  1. METFORMIN HCL [Concomitant]
     Route: 048
  2. ACTOS [Suspect]
     Indication: TYPE 2 DIABETES MELLITUS
     Dosage: 45MG DAIO;Y
     Route: 048
     Dates: start: 20050415, end: 20110907

REACTIONS (2)
  - RENAL CELL CARCINOMA [None]
  - BLADDER TRANSITIONAL CELL CARCINOMA [None]
